FAERS Safety Report 9414853 (Version 2)
Quarter: 2013Q3

REPORT INFORMATION
  Report Type: Report from Study
  Country: BR (occurrence: BR)
  Receive Date: 20130723
  Receipt Date: 20130821
  Transmission Date: 20140515
  Serious: Yes (Death)
  Sender: FDA-Public Use
  Company Number: PHHY2013BR077913

PATIENT
  Sex: Female

DRUGS (5)
  1. ACLASTA [Suspect]
     Indication: OSTEOPOROSIS
     Dosage: 5 MG, UNK
     Route: 042
     Dates: start: 2012
  2. CHLOROQUINE SULFATE [Concomitant]
     Indication: RHEUMATIC DISORDER
     Dosage: 1 DF, DAILY
     Route: 048
  3. TRAMAL [Concomitant]
     Indication: PAIN
     Dosage: 1 DF, DAILY
     Route: 048
  4. CALCITRAL D [Concomitant]
     Dosage: 1 UNK, DAILY
     Route: 048
  5. CAPTOPRIL [Concomitant]
     Indication: HYPERTENSION
     Dosage: 1 DF, DAILY IN MORNING
     Route: 048

REACTIONS (1)
  - Emphysema [Fatal]
